FAERS Safety Report 5443903-1 (Version None)
Quarter: 2007Q3

REPORT INFORMATION
  Report Type: 
  Country: None (occurrence: None)
  Receive Date: 20070905
  Receipt Date: 20070903
  Transmission Date: 20080115
  Serious: Yes (Other)
  Sender: FDA-Public Use
  Company Number: GB-BOEHRINGER INGELHEIM PHARMACEUTICALS, INC.-2007-UK-02765UK

PATIENT
  Age: 74 Year
  Sex: Male
  Weight: 90 kg

DRUGS (8)
  1. PERSANTIN (00015/0052R) [Suspect]
     Route: 048
     Dates: start: 20070816, end: 20070817
  2. ASPIRIN [Concomitant]
     Route: 048
  3. ATORVASTATIN [Concomitant]
     Route: 048
  4. BISOPROLOL [Concomitant]
     Route: 048
  5. GLICLAZIDE [Concomitant]
     Route: 048
  6. IRBESARTAN [Concomitant]
     Route: 048
  7. METFORMIN HCL [Concomitant]
     Route: 048
  8. SPIRONOLACTONE [Concomitant]
     Route: 048

REACTIONS (2)
  - RASH MACULO-PAPULAR [None]
  - RASH PRURITIC [None]
